FAERS Safety Report 7773937-3 (Version None)
Quarter: 2011Q3

REPORT INFORMATION
  Report Type: 
  Country: None (occurrence: None)
  Receive Date: 20110921
  Receipt Date: 20110526
  Transmission Date: 20111222
  Serious: Yes (Hospitalization)
  Sender: FDA-Public Use
  Company Number: UTC-007458

PATIENT
  Age: 15 Year
  Sex: Female

DRUGS (5)
  1. LASIX [Suspect]
  2. TYVASO [Suspect]
     Indication: PULMONARY HYPERTENSION
     Dosage: 72 MCG (18 MCG,4 IN 1 D),INHALATION
     Route: 055
     Dates: start: 20110211
  3. NIFEDIPINE [Concomitant]
  4. REVATIO [Concomitant]
  5. TRACLEER [Concomitant]

REACTIONS (3)
  - TACHYCARDIA [None]
  - DIZZINESS [None]
  - PALLOR [None]
